FAERS Safety Report 25486727 (Version 2)
Quarter: 2025Q3

REPORT INFORMATION
  Report Type: Report from Study
  Country: US (occurrence: US)
  Receive Date: 20250627
  Receipt Date: 20250909
  Transmission Date: 20251021
  Serious: Yes (Other)
  Sender: KYOWA
  Company Number: US-KYOWAKIRIN-2025KK011951

PATIENT

DRUGS (3)
  1. BUROSUMAB [Suspect]
     Active Substance: BUROSUMAB
     Indication: Hereditary hypophosphataemic rickets
     Route: 065
  2. BUROSUMAB [Suspect]
     Active Substance: BUROSUMAB
     Dosage: 70 MG, 1X/4 WEEKS
     Route: 042
     Dates: start: 20180821
  3. BUROSUMAB [Suspect]
     Active Substance: BUROSUMAB
     Route: 065
     Dates: start: 202508

REACTIONS (3)
  - Renal impairment [Unknown]
  - Renal impairment [Recovering/Resolving]
  - Bone pain [Unknown]
